FAERS Safety Report 20797945 (Version 1)
Quarter: 2022Q2

REPORT INFORMATION
  Report Type: Spontaneous
  Country: US (occurrence: US)
  Receive Date: 20220506
  Receipt Date: 20220506
  Transmission Date: 20220721
  Serious: No
  Sender: FDA-Public Use
  Company Number: US-BRISTOL-MYERS SQUIBB COMPANY-2022-018792

PATIENT
  Age: 43 Year
  Sex: Male

DRUGS (1)
  1. ELIQUIS [Suspect]
     Active Substance: APIXABAN
     Indication: Embolism venous
     Route: 048

REACTIONS (3)
  - Back pain [Unknown]
  - Peripheral swelling [Unknown]
  - Muscle strain [Unknown]

NARRATIVE: CASE EVENT DATE: 20220405
